FAERS Safety Report 4974861-1 (Version None)
Quarter: 2006Q1

REPORT INFORMATION
  Report Type: 
  Country: None (occurrence: None)
  Receive Date: 20060227
  Receipt Date: 20060113
  Transmission Date: 20060701
  Serious: No
  Sender: FDA-Public Use
  Company Number: PHEH2006US00959

PATIENT
  Age: 73 Year
  Sex: Female

DRUGS (8)
  1. ENABLEX [Suspect]
     Indication: HYPERTONIC BLADDER
     Dosage: 15 MG, OD
     Dates: start: 20051201, end: 20060105
  2. ENABLEX [Suspect]
     Indication: HYPERTONIC BLADDER
     Dosage: 15 MG, OD
     Dates: start: 20060109
  3. ZOLOFT [Concomitant]
  4. ELMIRON [Concomitant]
  5. METHIONINE CAP [Concomitant]
  6. TOPROL-XL [Concomitant]
  7. PREVACID [Concomitant]
  8. MULTIVITAMINS (ASCORBIC ACID, ERGOCALCIFEROL,FOLIC ACID, NICOTINAMIDE, [Concomitant]

REACTIONS (2)
  - CONSTIPATION [None]
  - DRY MOUTH [None]
